FAERS Safety Report 7736474-8 (Version None)
Quarter: 2011Q3

REPORT INFORMATION
  Report Type: 
  Country: None (occurrence: None)
  Receive Date: 20110908
  Receipt Date: 20110830
  Transmission Date: 20111222
  Serious: Yes (Life-Threatening, Hospitalization)
  Sender: FDA-Public Use
  Company Number: JP-BRISTOL-MYERS SQUIBB COMPANY-15932569

PATIENT
  Age: 57 Year
  Sex: Female
  Weight: 51 kg

DRUGS (10)
  1. METHOTREXATE [Suspect]
     Route: 048
     Dates: end: 20110719
  2. LANTUS [Concomitant]
  3. MIGLITOL [Concomitant]
  4. KINEDAK [Concomitant]
  5. ORENCIA [Suspect]
     Indication: MUSCULOSKELETAL PAIN
     Dosage: THERAPY DATES:24MAY11,7JUN11
     Route: 041
     Dates: start: 20110510, end: 20110720
  6. MEXITIL [Concomitant]
  7. GLYCORAN [Concomitant]
  8. PREDNISOLONE [Suspect]
     Indication: RHEUMATOID ARTHRITIS
  9. LYRICA [Concomitant]
  10. HUMALOG [Concomitant]

REACTIONS (1)
  - PNEUMOCYSTIS JIROVECI PNEUMONIA [None]
